FAERS Safety Report 4923943-9 (Version None)
Quarter: 2006Q1

REPORT INFORMATION
  Report Type: 
  Country: None (occurrence: None)
  Receive Date: 20060221
  Receipt Date: 20060215
  Transmission Date: 20060701
  Serious: Yes (Other)
  Sender: FDA-Public Use
  Company Number: 220178

PATIENT
  Sex: 0

DRUGS (2)
  1. MABTHERA(RITUXIMAB) CONC FOR SOLUTION FOR INFUSION [Suspect]
  2. BENDAMUSTINE (BENDAMUSTINE) [Suspect]

REACTIONS (1)
  - AGRANULOCYTOSIS [None]
